FAERS Safety Report 7396330-4 (Version None)
Quarter: 2011Q1

REPORT INFORMATION
  Report Type: 
  Country: None (occurrence: None)
  Receive Date: 20110331
  Receipt Date: 20110331
  Transmission Date: 20110831
  Serious: Yes (Other)
  Sender: FDA-Public Use
  Company Number: None

PATIENT
  Sex: Male
  Weight: 104.3273 kg

DRUGS (1)
  1. TWYNSTA [Suspect]
     Indication: HYPERTENSION
     Dosage: 80MG/5MG 2 TIMES A DAY
     Dates: start: 20110221, end: 20110321

REACTIONS (5)
  - NERVOUSNESS [None]
  - COUGH [None]
  - INSOMNIA [None]
  - BLOOD PRESSURE INCREASED [None]
  - HEADACHE [None]
